FAERS Safety Report 16814802 (Version 1)
Quarter: 2019Q4

REPORT INFORMATION
  Report Type: Spontaneous
  Country: US (occurrence: US)
  Receive Date: 20190916
  Receipt Date: 20190916
  Transmission Date: 20200122
  Serious: Yes (Hospitalization)
  Sender: FDA-Public Use
  Company Number: None

PATIENT
  Age: 59 Year
  Sex: Female

DRUGS (16)
  1. HYDROXYCHLOR [Concomitant]
     Active Substance: HYDROXYCHLOROQUINE
  2. HUMIRA [Suspect]
     Active Substance: ADALIMUMAB
     Indication: RHEUMATOID ARTHRITIS
     Dosage: ?          OTHER FREQUENCY:Q2WKS;?
     Route: 058
     Dates: start: 20190503
  3. MELOXICAM. [Concomitant]
     Active Substance: MELOXICAM
  4. MORPHINE [Concomitant]
     Active Substance: MORPHINE
  5. TIZANIDINE. [Concomitant]
     Active Substance: TIZANIDINE
  6. VENTOLIN [Concomitant]
     Active Substance: ALBUTEROL SULFATE
  7. AMITRIPTYLIN [Concomitant]
     Active Substance: AMITRIPTYLINE
  8. SULFASALAZINE DELAYED-RELEASE [Concomitant]
     Active Substance: SULFASALAZINE
  9. CYMBALTA [Concomitant]
     Active Substance: DULOXETINE HYDROCHLORIDE
  10. CALCIUM [Concomitant]
     Active Substance: CALCIUM
  11. TELMISARTAN. [Concomitant]
     Active Substance: TELMISARTAN
  12. VITAMIN D [Concomitant]
     Active Substance: VITAMIN D NOS
  13. ALBUTEROL. [Concomitant]
     Active Substance: ALBUTEROL
  14. DULOXETINE. [Concomitant]
     Active Substance: DULOXETINE
  15. ESTRADIOL. [Concomitant]
     Active Substance: ESTRADIOL
  16. ONDANSETRON [Concomitant]
     Active Substance: ONDANSETRON

REACTIONS (3)
  - Procedural pain [None]
  - Gastric bypass [None]
  - Therapy cessation [None]

NARRATIVE: CASE EVENT DATE: 20190829
